FAERS Safety Report 14751306 (Version 1)
Quarter: 2018Q2

REPORT INFORMATION
  Report Type: Spontaneous
  Country: US (occurrence: US)
  Receive Date: 20180406
  Receipt Date: 20180406
  Transmission Date: 20180711
  Serious: No
  Sender: FDA-Public Use
  Company Number: None

PATIENT
  Age: 28 Year
  Sex: Female

DRUGS (2)
  1. TASIGNA [Suspect]
     Active Substance: NILOTINIB
  2. ZYTIGA [Suspect]
     Active Substance: ABIRATERONE ACETATE

REACTIONS (3)
  - Insomnia [None]
  - Arthralgia [None]
  - Injury [None]

NARRATIVE: CASE EVENT DATE: 20180406
